FAERS Safety Report 6667797-1 (Version None)
Quarter: 2010Q2

REPORT INFORMATION
  Report Type: 
  Country: None (occurrence: None)
  Receive Date: 20100405
  Receipt Date: 20100324
  Transmission Date: 20101027
  Serious: Yes (Other)
  Sender: FDA-Public Use
  Company Number: PHHY2010JP18295

PATIENT
  Age: 63 Year
  Sex: Male

DRUGS (1)
  1. CYCLOSPORINE [Suspect]
     Indication: PSORIASIS
     Dosage: 150 MG/DAY
     Dates: end: 20070401

REACTIONS (2)
  - AUTOIMMUNE PANCREATITIS [None]
  - RENAL IMPAIRMENT [None]
